FAERS Safety Report 8918580 (Version 1)
Quarter: 2012Q4

REPORT INFORMATION
  Report Type: 
  Country: US (occurrence: US)
  Receive Date: 20121120
  Receipt Date: 20121120
  Transmission Date: 20130627
  Serious: No
  Sender: FDA-Public Use
  Company Number: US-ASTRAZENECA-2012SE22363

PATIENT
  Age: 64 Year
  Sex: Female
  Weight: 81.6 kg

DRUGS (9)
  1. NEXIUM [Suspect]
     Indication: DIVERTICULUM
     Route: 048
  2. NEXIUM [Suspect]
     Indication: GASTRIC DISORDER
     Route: 048
  3. LISINOPRIL [Suspect]
     Indication: BLOOD PRESSURE ABNORMAL
     Route: 048
  4. SEROQUEL [Suspect]
     Indication: SLEEP DISORDER THERAPY
     Route: 048
  5. EFFEXOR XR [Concomitant]
     Indication: DEPRESSION
  6. METFORMIN [Concomitant]
     Indication: DIABETES MELLITUS
  7. TRAMADOL [Concomitant]
     Indication: PAIN
  8. CLONAZEPAM [Concomitant]
     Indication: MENTAL DISORDER
  9. TENOCLOR [Concomitant]
     Indication: BLOOD PRESSURE ABNORMAL

REACTIONS (6)
  - Spinal osteoarthritis [Unknown]
  - Neuropathy peripheral [Unknown]
  - Adverse event [Unknown]
  - Joint swelling [Unknown]
  - Abdominal discomfort [Unknown]
  - Drug ineffective [Unknown]
